FAERS Safety Report 7243912-6 (Version None)
Quarter: 2011Q1

REPORT INFORMATION
  Report Type: 
  Country: None (occurrence: None)
  Receive Date: 20110125
  Receipt Date: 20110119
  Transmission Date: 20110831
  Serious: Yes (Other)
  Sender: FDA-Public Use
  Company Number: A0908741A

PATIENT
  Sex: Female

DRUGS (1)
  1. PAXIL [Suspect]
     Indication: DEPRESSION
     Route: 048
     Dates: start: 19950101

REACTIONS (7)
  - MULTIPLE SCLEROSIS [None]
  - INFERTILITY FEMALE [None]
  - ASTHENIA [None]
  - DEPRESSION [None]
  - DRUG INEFFECTIVE [None]
  - OBSESSIVE-COMPULSIVE DISORDER [None]
  - VERTIGO [None]
